FAERS Safety Report 5160754-6 (Version None)
Quarter: 2006Q4

REPORT INFORMATION
  Report Type: 
  Country: None (occurrence: None)
  Receive Date: 20060918
  Receipt Date: 20060714
  Transmission Date: 20070319
  Serious: Yes (Hospitalization, Other)
  Sender: FDA-Public Use
  Company Number: US-JNJFOC-20060703342

PATIENT
  Age: 36 Year
  Sex: Female
  Weight: 59.8748 kg

DRUGS (2)
  1. ORTHO EVRA [Suspect]
     Indication: DRUG USE FOR UNKNOWN INDICATION
     Dosage: TRANSDERMAL
     Route: 062
     Dates: start: 20050501, end: 20050701
  2. ALLEGRA [Concomitant]

REACTIONS (1)
  - DEEP VEIN THROMBOSIS [None]
